FAERS Safety Report 5339208-X (Version None)
Quarter: 2007Q2

REPORT INFORMATION
  Report Type: 
  Country: None (occurrence: None)
  Receive Date: 20070525
  Receipt Date: 20070502
  Transmission Date: 20071010
  Serious: Yes (Other)
  Sender: FDA-Public Use
  Company Number: S07-ITA-01364-01

PATIENT
  Age: 48 Year
  Sex: Female

DRUGS (1)
  1. ESCITALOPRAM [Suspect]
     Indication: VERTIGO
     Dosage: 10 MG QD PO
     Route: 048
     Dates: start: 20060817, end: 20060829

REACTIONS (5)
  - CONVULSION [None]
  - RESPIRATORY DISORDER [None]
  - SPEECH DISORDER [None]
  - SWELLING FACE [None]
  - SWOLLEN TONGUE [None]
